FAERS Safety Report 6699341-7 (Version None)
Quarter: 2010Q2

REPORT INFORMATION
  Report Type: 
  Country: None (occurrence: None)
  Receive Date: 20100427
  Receipt Date: 20100420
  Transmission Date: 20101027
  Serious: Yes (Hospitalization)
  Sender: FDA-Public Use
  Company Number: AU-NOVOPROD-303751

PATIENT
  Sex: Female
  Weight: 73.5 kg

DRUGS (1)
  1. NOVORAPID FLEXPEN [Suspect]
     Indication: TYPE 1 DIABETES MELLITUS
     Dosage: 60 U, QD
     Route: 058
     Dates: start: 20000901

REACTIONS (3)
  - DIABETIC KETOACIDOSIS [None]
  - DRUG INEFFECTIVE [None]
  - HYPERGLYCAEMIA [None]
